FAERS Safety Report 8912532 (Version 4)
Quarter: 2014Q2

REPORT INFORMATION
  Report Type: Spontaneous
  Country: US (occurrence: US)
  Receive Date: 20121115
  Receipt Date: 20140623
  Transmission Date: 20141212
  Serious: No
  Sender: FDA-Public Use
  Company Number: US-009507513-1211USA003843

PATIENT
  Sex: Male

DRUGS (2)
  1. PROPECIA [Suspect]
     Indication: ANDROGENETIC ALOPECIA
     Dosage: 1 MG, UNK
     Route: 048
     Dates: start: 20020718, end: 20030613
  2. PROSCAR [Suspect]
     Indication: ANDROGENETIC ALOPECIA
     Dosage: 5 MG, 1/2 TABLET, QD
     Route: 048
     Dates: start: 20041202, end: 20051104

REACTIONS (15)
  - Cognitive disorder [Not Recovered/Not Resolved]
  - Drug administration error [Unknown]
  - Prostatomegaly [Unknown]
  - Pain [Unknown]
  - Pyrexia [Unknown]
  - Blood cholesterol increased [Unknown]
  - Blood testosterone decreased [Unknown]
  - Bacterial infection [Unknown]
  - Inflammation [Unknown]
  - Wrong technique in drug usage process [Unknown]
  - Depression [Unknown]
  - Sexual dysfunction [Not Recovered/Not Resolved]
  - Erectile dysfunction [Not Recovered/Not Resolved]
  - Drug ineffective [Unknown]
  - Off label use [Unknown]
